FAERS Safety Report 5491651-4 (Version None)
Quarter: 2007Q4

REPORT INFORMATION
  Report Type: 
  Country: None (occurrence: None)
  Receive Date: 20071018
  Receipt Date: 20071018
  Transmission Date: 20080405
  Serious: Yes (Hospitalization)
  Sender: FDA-Public Use
  Company Number: None

PATIENT
  Age: 64 Year
  Sex: Female
  Weight: 58 kg

DRUGS (1)
  1. GEMZAR [Suspect]
     Indication: PERIPHERAL T-CELL LYMPHOMA UNSPECIFIED RECURRENT
     Dosage: 1600MG ONCE IV
     Route: 042
     Dates: start: 20070809, end: 20070809

REACTIONS (3)
  - RASH ERYTHEMATOUS [None]
  - RASH GENERALISED [None]
  - SKIN EXFOLIATION [None]
